FAERS Safety Report 5892371-4 (Version None)
Quarter: 2008Q3

REPORT INFORMATION
  Report Type: 
  Country: None (occurrence: None)
  Receive Date: 20080918
  Receipt Date: 20080918
  Transmission Date: 20090109
  Serious: No
  Sender: FDA-Public Use
  Company Number: None

PATIENT
  Age: 33 Year
  Sex: Female
  Weight: 58.9676 kg

DRUGS (1)
  1. KENALOG [Suspect]
     Indication: SCAR
     Dosage: 1 ID
     Route: 023
     Dates: start: 20080618, end: 20080811

REACTIONS (3)
  - INJECTION SITE REACTION [None]
  - PROCEDURAL COMPLICATION [None]
  - SOFT TISSUE NECROSIS [None]
